FAERS Safety Report 14771669 (Version 1)
Quarter: 2018Q2

REPORT INFORMATION
  Report Type: Spontaneous
  Country: US (occurrence: US)
  Receive Date: 20180417
  Receipt Date: 20180417
  Transmission Date: 20180711
  Serious: No
  Sender: FDA-Public Use
  Company Number: US-ALLERGAN-1773497US

PATIENT
  Age: 85 Year
  Sex: Female

DRUGS (1)
  1. LUMIGAN [Suspect]
     Active Substance: BIMATOPROST
     Indication: GLAUCOMA
     Dosage: 1 GTT, QPM
     Route: 047
     Dates: start: 2015

REACTIONS (3)
  - Drug dose omission [Unknown]
  - Eyelid cyst [Unknown]
  - Eyelid thickening [Unknown]

NARRATIVE: CASE EVENT DATE: 2017
